FAERS Safety Report 10506548 (Version 1)
Quarter: 2014Q4

REPORT INFORMATION
  Report Type: Spontaneous
  Country: DE (occurrence: DE)
  Receive Date: 20141009
  Receipt Date: 20141009
  Transmission Date: 20150528
  Serious: Yes (Congenital Anomaly, Other)
  Sender: FDA-Public Use
  Company Number: DE-DRREDDYS-GER/GER/14/0043456

PATIENT
  Sex: Female
  Weight: 2.8 kg

DRUGS (2)
  1. FOLIO [Concomitant]
     Active Substance: FOLIC ACID
     Indication: PRODUCT USED FOR UNKNOWN INDICATION
     Route: 064
  2. VENLAFAXINE [Suspect]
     Active Substance: VENLAFAXINE HYDROCHLORIDE
     Indication: PRODUCT USED FOR UNKNOWN INDICATION
     Dosage: 75 MG PER DAY FROM GESTATIONAL WEEK 0-15, FROM GW 15-29 NO THERAPY AND GW 29-37, 37.5 MG PER DAY.
     Route: 064
     Dates: start: 20130502, end: 20140119

REACTIONS (3)
  - Foetal exposure during pregnancy [Unknown]
  - Tethered cord syndrome [Recovered/Resolved with Sequelae]
  - Meningomyelocele [Recovered/Resolved with Sequelae]
